FAERS Safety Report 7128179-1 (Version None)
Quarter: 2010Q4

REPORT INFORMATION
  Report Type: 
  Country: None (occurrence: None)
  Receive Date: 20101112
  Receipt Date: 20101027
  Transmission Date: 20110411
  Serious: Yes (Hospitalization)
  Sender: FDA-Public Use
  Company Number: 2010AM003291

PATIENT
  Sex: Male
  Weight: 172.3669 kg

DRUGS (5)
  1. SYMLIN [Suspect]
     Indication: TYPE 2 DIABETES MELLITUS
     Dosage: 60 MCG;QD;SC
     Route: 058
     Dates: start: 20100101, end: 20100101
  2. AMLODIPINE [Concomitant]
  3. ANGIOTENSION II [Concomitant]
  4. HUMALOG [Concomitant]
  5. LANTUS [Concomitant]

REACTIONS (1)
  - PANCREATITIS [None]
